FAERS Safety Report 22321795 (Version 1)
Quarter: 2023Q2

REPORT INFORMATION
  Report Type: Spontaneous
  Country: DE (occurrence: DE)
  Receive Date: 20230516
  Receipt Date: 20230516
  Transmission Date: 20230721
  Serious: Yes (Other)
  Sender: FDA-Public Use
  Company Number: None

PATIENT
  Age: 68 Year
  Sex: Male
  Weight: 75 kg

DRUGS (1)
  1. FINASTERIDE [Suspect]
     Active Substance: FINASTERIDE
     Indication: Benign prostatic hyperplasia
     Dosage: 1 DOSAGE FORMS DAILY; 1-0-0
     Route: 065
     Dates: start: 2017, end: 2022

REACTIONS (1)
  - Polyneuropathy [Recovering/Resolving]

NARRATIVE: CASE EVENT DATE: 20200815
